FAERS Safety Report 8927278 (Version 2)
Quarter: 2013Q1

REPORT INFORMATION
  Report Type: Report from Study
  Country: DE (occurrence: DE)
  Receive Date: 20121127
  Receipt Date: 20130121
  Transmission Date: 20140127
  Serious: Yes (Hospitalization)
  Sender: FDA-Public Use
  Company Number: DE-ABBOTT-12P-062-1011495-00

PATIENT
  Age: 56 Year
  Sex: Female
  Weight: 93 kg

DRUGS (3)
  1. HUMIRA [Suspect]
     Indication: PSORIATIC ARTHROPATHY
     Route: 058
     Dates: start: 20120530
  2. LEFLUNOMID [Concomitant]
     Indication: PSORIATIC ARTHROPATHY
     Route: 048
     Dates: start: 201204
  3. CORTISONE [Concomitant]
     Indication: PSORIATIC ARTHROPATHY
     Dosage: 5MG PER DAY

REACTIONS (2)
  - Hospitalisation [Unknown]
  - Injection site erythema [Not Recovered/Not Resolved]
